FAERS Safety Report 6046662-7 (Version None)
Quarter: 2009Q1

REPORT INFORMATION
  Report Type: 
  Country: None (occurrence: None)
  Receive Date: 20090122
  Receipt Date: 20090116
  Transmission Date: 20090719
  Serious: Yes (Hospitalization, Other)
  Sender: FDA-Public Use
  Company Number: PL-BAYER-200910497GPV

PATIENT
  Age: 79 Year
  Sex: Female
  Weight: 78 kg

DRUGS (11)
  1. SORAFENIB [Suspect]
     Indication: RENAL CELL CARCINOMA
     Route: 048
  2. SORAFENIB [Suspect]
     Dosage: TOTAL DAILY DOSE: 1600 MG
     Route: 048
     Dates: start: 20081211, end: 20081223
  3. SORAFENIB [Suspect]
     Dosage: TOTAL DAILY DOSE: 600 MG
     Route: 048
     Dates: start: 20090108, end: 20090108
  4. SORAFENIB [Suspect]
     Dosage: TOTAL DAILY DOSE: 1200 MG
     Route: 048
     Dates: start: 20090109
  5. ENARENAL [Concomitant]
     Indication: HYPERTENSION
     Route: 048
     Dates: start: 20080919, end: 20081223
  6. TERTENSIF [Concomitant]
     Indication: HYPERTENSION
     Route: 048
     Dates: start: 20080910, end: 20081223
  7. CONCOR [Concomitant]
     Indication: HYPERTENSION
     Route: 048
     Dates: start: 20080616, end: 20081223
  8. AMLOPIN [Concomitant]
     Indication: HYPERTENSION
     Route: 048
     Dates: start: 20080616, end: 20081223
  9. MILURIT [Concomitant]
     Indication: BLOOD URIC ACID INCREASED
     Route: 048
     Dates: start: 20080711
  10. METIZOL [Concomitant]
     Indication: GOITRE
     Route: 048
     Dates: start: 20080718
  11. STOPERAN [Concomitant]
     Indication: DIARRHOEA
     Route: 048
     Dates: start: 20081211

REACTIONS (1)
  - RENAL FAILURE [None]
